FAERS Safety Report 10730063 (Version 2)
Quarter: 2015Q1

REPORT INFORMATION
  Report Type: Spontaneous
  Country: US (occurrence: US)
  Receive Date: 20150122
  Receipt Date: 20150224
  Transmission Date: 20150721
  Serious: Yes (Hospitalization, Other)
  Sender: FDA-Public Use
  Company Number: US-009507513-1501USA006423

PATIENT
  Age: 61 Year
  Sex: Female
  Weight: 96.6 kg

DRUGS (4)
  1. RAMIPRIL. [Suspect]
     Active Substance: RAMIPRIL
     Indication: HYPERTENSION
  2. COZAAR [Suspect]
     Active Substance: LOSARTAN POTASSIUM
     Indication: HYPERTENSION
     Route: 048
  3. PRINIVIL [Suspect]
     Active Substance: LISINOPRIL
     Indication: HYPERTENSION
     Route: 048
  4. LASIX [Suspect]
     Active Substance: FUROSEMIDE
     Indication: HYPERTENSION

REACTIONS (31)
  - Thrombocytosis [Unknown]
  - Urinary tract infection fungal [Unknown]
  - Rhabdomyolysis [Unknown]
  - Diabetic neuropathy [Unknown]
  - Leukocytosis [Unknown]
  - Cholelithiasis [Unknown]
  - Hysterectomy [Unknown]
  - Tricuspid valve incompetence [Unknown]
  - Obstructive airways disorder [Unknown]
  - Pain in extremity [Recovered/Resolved]
  - Glaucoma [Unknown]
  - Retinal haemorrhage [Unknown]
  - Retinal detachment [Unknown]
  - Sleep apnoea syndrome [Unknown]
  - Peripheral vascular disorder [Unknown]
  - Tonsillectomy [Unknown]
  - Diabetes mellitus [Unknown]
  - Spinal column stenosis [Unknown]
  - Acute kidney injury [Unknown]
  - Arthritis [Unknown]
  - Hepatic steatosis [Unknown]
  - Pulmonary hypertension [Not Recovered/Not Resolved]
  - Chronic kidney disease [Not Recovered/Not Resolved]
  - Deep vein thrombosis [Unknown]
  - Hypercholesterolaemia [Unknown]
  - Anaemia [Unknown]
  - Osteopenia [Unknown]
  - Generalised oedema [Unknown]
  - Intervertebral disc protrusion [Unknown]
  - Blindness unilateral [Not Recovered/Not Resolved]
  - Dilatation ventricular [Unknown]

NARRATIVE: CASE EVENT DATE: 2014
